FAERS Safety Report 9766996 (Version 1)
Quarter: 2013Q4

REPORT INFORMATION
  Report Type: Spontaneous
  Country: US (occurrence: None)
  Receive Date: 20131216
  Receipt Date: 20131216
  Transmission Date: 20140711
  Serious: Yes (Hospitalization)
  Sender: FDA-Public Use
  Company Number: None

PATIENT
  Age: 39 Year
  Sex: Female
  Weight: 67 kg

DRUGS (4)
  1. BYDUREON [Suspect]
     Indication: DIABETES MELLITUS
     Route: 058
     Dates: start: 20131202, end: 20131208
  2. METFORMIN XL [Concomitant]
  3. HCTZ [Concomitant]
  4. CLARITIN [Concomitant]

REACTIONS (8)
  - Hypoglycaemia [None]
  - Dizziness [None]
  - Inappropriate schedule of drug administration [None]
  - Accidental overdose [None]
  - Fatigue [None]
  - Nausea [None]
  - Decreased appetite [None]
  - Headache [None]
